FAERS Safety Report 7378371-6 (Version None)
Quarter: 2011Q1

REPORT INFORMATION
  Report Type: 
  Country: None (occurrence: None)
  Receive Date: 20110328
  Receipt Date: 20110321
  Transmission Date: 20110831
  Serious: Yes (Other)
  Sender: FDA-Public Use
  Company Number: US-JNJFOC-20101203893

PATIENT
  Sex: Male

DRUGS (7)
  1. STELARA [Suspect]
     Indication: PSORIASIS
     Route: 058
  2. STELARA [Suspect]
     Route: 058
  3. DEPAKOTE [Concomitant]
     Indication: EPILEPSY
  4. GEMFIBROZIL [Concomitant]
     Indication: HYPERLIPIDAEMIA
  5. SIMVASTATIN [Concomitant]
  6. INSULIN [Concomitant]
     Indication: DIABETES MELLITUS
  7. TEGRETOL [Concomitant]
     Indication: EPILEPSY

REACTIONS (2)
  - CHEST PAIN [None]
  - HYPERTENSION [None]
